FAERS Safety Report 9051018 (Version 2)
Quarter: 2013Q2

REPORT INFORMATION
  Report Type: Spontaneous
  Country: FR (occurrence: FR)
  Receive Date: 20130205
  Receipt Date: 20130417
  Transmission Date: 20140414
  Serious: Yes (Hospitalization)
  Sender: FDA-Public Use
  Company Number: FR-SANOFI-AVENTIS-2013SA007760

PATIENT
  Age: 78 Year
  Sex: Female

DRUGS (5)
  1. LOVENOX [Suspect]
     Indication: THROMBOSIS PROPHYLAXIS
     Route: 058
     Dates: start: 20121207, end: 20121216
  2. AUGMENTIN [Suspect]
     Indication: PNEUMONIA
     Route: 042
     Dates: start: 20121205, end: 20121208
  3. AUGMENTIN [Suspect]
     Indication: PNEUMONIA
     Route: 048
     Dates: start: 20121208, end: 20121214
  4. DAFALGAN [Suspect]
     Indication: PYREXIA
     Dosage: STRENGTH: 500 MG
     Route: 048
     Dates: start: 20121206, end: 20121216
  5. DIFFU K [Suspect]
     Indication: HYPOKALAEMIA
     Route: 048
     Dates: start: 20121208, end: 20121216

REACTIONS (9)
  - Jaundice cholestatic [Recovered/Resolved]
  - Pruritus [Recovered/Resolved]
  - Nausea [Recovered/Resolved]
  - Abdominal pain [Recovered/Resolved]
  - Chromaturia [Recovered/Resolved]
  - Faeces discoloured [Recovered/Resolved]
  - Decreased appetite [Recovered/Resolved]
  - Asthenia [Recovered/Resolved]
  - Weight decreased [Recovered/Resolved]
